FAERS Safety Report 19000492 (Version 1)
Quarter: 2021Q1

REPORT INFORMATION
  Report Type: Spontaneous
  Country: GB (occurrence: GB)
  Receive Date: 20210312
  Receipt Date: 20210312
  Transmission Date: 20210420
  Serious: Yes (Other)
  Sender: FDA-Public Use
  Company Number: GB-TEVA-2021-GB-1888976

PATIENT
  Age: 57 Year
  Sex: Female
  Weight: 97 kg

DRUGS (23)
  1. ALLOPURINOL. [Suspect]
     Active Substance: ALLOPURINOL
     Dates: start: 20210126
  2. EPLERENONE. [Concomitant]
     Active Substance: EPLERENONE
     Dosage: HALF IN MORNING ASD
     Dates: start: 20200324
  3. FLUTICASONE FUROATE [Concomitant]
     Active Substance: FLUTICASONE FUROATE
     Dosage: 1 DOSAGE FORMS DAILY;
     Route: 055
     Dates: start: 20200324
  4. NEFOPAM [Concomitant]
     Active Substance: NEFOPAM
     Dosage: TAKE 1?2 TABLETS , TDS , PRN
     Dates: start: 20200324
  5. SACUBITRIL [Concomitant]
     Active Substance: SACUBITRIL
     Dosage: 2 DOSAGE FORMS DAILY;
     Dates: start: 20200324
  6. DUPILUMAB [Concomitant]
     Active Substance: DUPILUMAB
     Dosage: HOSPITAL ONLY. DO NOT ISSUE/DISPENSE
     Dates: start: 20201216
  7. LORATADINE. [Concomitant]
     Active Substance: LORATADINE
     Dosage: 1 DOSAGE FORMS DAILY;
     Dates: start: 20200324
  8. MONTELUKAST [Concomitant]
     Active Substance: MONTELUKAST SODIUM
     Dosage: 1 DOSAGE FORMS DAILY; AT NIGHT
     Dates: start: 20200324
  9. BRALTUS [Concomitant]
     Active Substance: TIOTROPIUM BROMIDE
     Dosage: 1 DOSAGE FORMS DAILY;
     Route: 055
     Dates: start: 20200324
  10. OILATUM [Concomitant]
     Dosage: 1 DOSAGE FORMS DAILY;
     Dates: start: 20200324, end: 20201216
  11. ADCAL [Concomitant]
     Dosage: 2 DOSAGE FORMS DAILY;
     Dates: start: 20200324
  12. FUROSEMIDE. [Concomitant]
     Active Substance: FUROSEMIDE
     Dosage: 1 DOSAGE FORMS DAILY; EACH MORNING
     Dates: start: 20200324
  13. HYDROCORTISONE. [Concomitant]
     Active Substance: HYDROCORTISONE
     Dosage: ONE TABLET MORNING, HALF TABLET ?MIDDAY, HALF T...
     Dates: start: 20200925
  14. LANSOPRAZOLE. [Concomitant]
     Active Substance: LANSOPRAZOLE
     Dosage: 1 DOSAGE FORMS DAILY;
     Dates: start: 20200324
  15. COLCHICINE. [Concomitant]
     Active Substance: COLCHICINE
     Dosage: 2 DOSAGE FORMS DAILY;
     Dates: start: 20210108, end: 20210227
  16. AVAMYS [Concomitant]
     Active Substance: FLUTICASONE FUROATE
     Dosage: 1 DOSAGE FORMS DAILY;
     Dates: start: 20200324
  17. ELOCON [Concomitant]
     Active Substance: MOMETASONE FUROATE
     Dosage: 1 DOSAGE FORMS DAILY; APPLY TO BODY ONCE DAILY AS ADV
     Dates: start: 20200324, end: 20201216
  18. UNIPHYLLIN [Concomitant]
     Active Substance: THEOPHYLLINE ANHYDROUS
     Dates: start: 20200324, end: 20201216
  19. ALLOPURINOL. [Suspect]
     Active Substance: ALLOPURINOL
     Dosage: 1 DOSAGE FORMS DAILY;
     Dates: start: 20210108
  20. IVABRADINE [Concomitant]
     Active Substance: IVABRADINE
     Dosage: 2 DOSAGE FORMS DAILY;
     Dates: start: 20200324
  21. ONDANSETRON [Concomitant]
     Active Substance: ONDANSETRON
     Dosage: TAKE ONE TO BE TAKEN TWICE DAILY  WHEN REQUIRED
     Dates: start: 20200806
  22. SALBUTAMOL [Concomitant]
     Active Substance: ALBUTEROL
     Route: 055
     Dates: start: 20200324
  23. ZAPAIN [Concomitant]
     Active Substance: ACETAMINOPHEN\CODEINE PHOSPHATE
     Dosage: TAKE 1 OR 2 , 4 TIMES/ (THIS IS YOUR COCODAMOL ...
     Dates: start: 20201120

REACTIONS (1)
  - Rash macular [Recovered/Resolved]

NARRATIVE: CASE EVENT DATE: 20210222
